FAERS Safety Report 9322795 (Version 4)
Quarter: 2014Q1

REPORT INFORMATION
  Report Type: Spontaneous
  Country: US (occurrence: US)
  Receive Date: 20130601
  Receipt Date: 20140101
  Transmission Date: 20141002
  Serious: Yes (Hospitalization, Other)
  Sender: FDA-Public Use
  Company Number: US-ASTRAZENECA-2013SE38540

PATIENT
  Age: 48 Year
  Sex: Female

DRUGS (30)
  1. NEXIUM [Suspect]
     Indication: GASTROOESOPHAGEAL REFLUX DISEASE
     Dosage: ONCE A DAY AT BED TIME
     Route: 048
     Dates: start: 200202, end: 2013
  2. NEXIUM [Suspect]
     Indication: GASTRIC ULCER
     Dosage: ONCE A DAY AT BED TIME
     Route: 048
     Dates: start: 200202, end: 2013
  3. NEXIUM [Suspect]
     Indication: DYSPEPSIA
     Dosage: ONCE A DAY AT BED TIME
     Route: 048
     Dates: start: 200202, end: 2013
  4. NEXIUM [Suspect]
     Indication: GASTROOESOPHAGEAL REFLUX DISEASE
     Route: 048
     Dates: start: 20091117
  5. NEXIUM [Suspect]
     Indication: GASTRIC ULCER
     Route: 048
     Dates: start: 20091117
  6. NEXIUM [Suspect]
     Indication: DYSPEPSIA
     Route: 048
     Dates: start: 20091117
  7. NEXIUM [Suspect]
     Indication: GASTROOESOPHAGEAL REFLUX DISEASE
     Route: 048
     Dates: start: 20100305
  8. NEXIUM [Suspect]
     Indication: GASTRIC ULCER
     Route: 048
     Dates: start: 20100305
  9. NEXIUM [Suspect]
     Indication: DYSPEPSIA
     Route: 048
     Dates: start: 20100305
  10. PRILOSEC [Suspect]
     Route: 048
  11. PRILOSEC [Suspect]
     Route: 048
     Dates: start: 201305
  12. PREDNISONE [Suspect]
     Route: 065
  13. PREDNISONE [Suspect]
     Route: 065
     Dates: start: 20080602
  14. PREDNISONE [Suspect]
     Route: 065
     Dates: start: 20091117
  15. PEPCID [Concomitant]
     Dosage: TWO TIMES IN DAY
  16. ZANTAC [Concomitant]
  17. PROTONIX [Concomitant]
     Dates: start: 200909, end: 201104
  18. TAGAMET [Concomitant]
     Dates: start: 200207, end: 200303
  19. ROLAIDS [Concomitant]
     Dosage: AS NEEDED
  20. MYLANTA [Concomitant]
     Dosage: AS NEEDED
  21. NORVASC [Concomitant]
     Indication: CARDIAC DISORDER
  22. ACCUPRIL [Concomitant]
     Indication: BLOOD PRESSURE ABNORMAL
  23. SUCRALFATE [Concomitant]
     Indication: ABDOMINAL DISCOMFORT
  24. PLAQUENIL [Concomitant]
  25. HEXARESE [Concomitant]
     Indication: HYPOTONIA
  26. TEMAZEPAM [Concomitant]
     Dosage: ONCE A DAY
  27. TRAMADOL [Concomitant]
     Indication: PAIN
     Dosage: ONE TABLET EVERY SIX HOURS AS NEEDED
     Route: 048
  28. ZOLPIDEM [Concomitant]
  29. TRAZADONE [Concomitant]
     Dates: start: 20070710
  30. QUINAPRIL [Concomitant]
     Dates: start: 20060712

REACTIONS (20)
  - Wrist fracture [Unknown]
  - Hip fracture [Unknown]
  - Fall [Unknown]
  - Aortic dissection [Unknown]
  - Humerus fracture [Unknown]
  - Meningitis aseptic [Unknown]
  - Osteonecrosis [Unknown]
  - Osteoporosis [Unknown]
  - Osteoarthritis [Unknown]
  - Bone disorder [Unknown]
  - Bronchitis [Unknown]
  - Cystitis [Unknown]
  - Large intestine polyp [Unknown]
  - Anxiety [Unknown]
  - Angina pectoris [Unknown]
  - Aortic disorder [Unknown]
  - Arthritis [Unknown]
  - Vitamin D deficiency [Unknown]
  - Depression [Unknown]
  - Osteopenia [Unknown]
